FAERS Safety Report 18066227 (Version 1)
Quarter: 2020Q3

REPORT INFORMATION
  Report Type: Spontaneous
  Country: US (occurrence: US)
  Receive Date: 20200724
  Receipt Date: 20200724
  Transmission Date: 20201103
  Serious: Yes (Other)
  Sender: FDA-Public Use
  Company Number: None

PATIENT
  Age: 60 Year
  Sex: Female
  Weight: 151 kg

DRUGS (20)
  1. AMIODARONE [Concomitant]
     Active Substance: AMIODARONE
     Dates: start: 20200715, end: 20200720
  2. ATORVASTATIN [Concomitant]
     Active Substance: ATORVASTATIN
     Dates: start: 20200715, end: 20200724
  3. AMLODIPINE [Concomitant]
     Active Substance: AMLODIPINE BESYLATE
     Dates: start: 20200715, end: 20200718
  4. ASPIRIN. [Concomitant]
     Active Substance: ASPIRIN
     Dates: start: 20200716, end: 20200724
  5. CEFTRIAXONE. [Concomitant]
     Active Substance: CEFTRIAXONE
     Dates: start: 20200718, end: 20200724
  6. INSULIN [Concomitant]
     Active Substance: INSULIN NOS
     Dates: start: 20200716, end: 20200724
  7. ACETAMINOPHEN. [Concomitant]
     Active Substance: ACETAMINOPHEN
     Dates: start: 20200715, end: 20200718
  8. AZITHROMYCIN ANHYDROUS. [Concomitant]
     Active Substance: AZITHROMYCIN ANHYDROUS
     Dates: start: 20200718, end: 20200720
  9. CARVEDILOL. [Concomitant]
     Active Substance: CARVEDILOL
     Dates: start: 20200715, end: 20200718
  10. FENTANYL. [Concomitant]
     Active Substance: FENTANYL
     Dates: start: 20200718, end: 20200724
  11. VASOPRESSIN. [Concomitant]
     Active Substance: VASOPRESSIN
     Dates: start: 20200721, end: 20200722
  12. DEXAMETHASONE. [Concomitant]
     Active Substance: DEXAMETHASONE
     Dates: start: 20200715, end: 20200724
  13. LANSOPRAZOLE. [Concomitant]
     Active Substance: LANSOPRAZOLE
     Dates: start: 20200719, end: 20200724
  14. POTASSIUM CHLORIDE. [Concomitant]
     Active Substance: POTASSIUM CHLORIDE
     Dates: start: 20200719, end: 20200719
  15. HEPARIN [Concomitant]
     Active Substance: HEPARIN SODIUM
     Dates: start: 20200715, end: 20200724
  16. FENTANYL. [Concomitant]
     Active Substance: FENTANYL
     Dates: start: 20200718, end: 20200724
  17. REMDESIVIR. [Suspect]
     Active Substance: REMDESIVIR
     Indication: COVID-19 PNEUMONIA
     Route: 041
     Dates: start: 20200717, end: 20200721
  18. FUROSEMIDE. [Concomitant]
     Active Substance: FUROSEMIDE
     Dates: start: 20200717, end: 20200723
  19. PROPOFOL. [Concomitant]
     Active Substance: PROPOFOL
     Dates: start: 20200718, end: 20200724
  20. EPINEPHRINE. [Concomitant]
     Active Substance: EPINEPHRINE
     Dates: start: 20200719, end: 20200721

REACTIONS (2)
  - Acute kidney injury [None]
  - Hypovolaemic shock [None]

NARRATIVE: CASE EVENT DATE: 20200720
